FAERS Safety Report 6009010-4 (Version None)
Quarter: 2008Q4

REPORT INFORMATION
  Report Type: 
  Country: None (occurrence: None)
  Receive Date: 20081217
  Receipt Date: 20080130
  Transmission Date: 20090506
  Serious: No
  Sender: FDA-Public Use
  Company Number: US-AMGEN-QUU263346

PATIENT
  Sex: Female

DRUGS (5)
  1. ENBREL [Suspect]
     Indication: PSORIASIS
     Route: 058
     Dates: start: 20060901, end: 20080125
  2. BENICAR [Concomitant]
     Route: 048
     Dates: end: 20061107
  3. ZOLOFT [Concomitant]
     Route: 048
     Dates: end: 20070501
  4. NIFEDIPINE [Concomitant]
     Route: 048
     Dates: start: 20061101
  5. UNSPECIFIED MEDICATION [Concomitant]

REACTIONS (1)
  - VOMITING IN PREGNANCY [None]
